FAERS Safety Report 9842192 (Version 2)
Quarter: 2014Q1

REPORT INFORMATION
  Report Type: Spontaneous
  Country: US (occurrence: US)
  Receive Date: 20140124
  Receipt Date: 20140207
  Transmission Date: 20141002
  Serious: Yes (Hospitalization)
  Sender: FDA-Public Use
  Company Number: US-GLAXOSMITHKLINE-A1056921A

PATIENT
  Age: 50 Year
  Sex: Female

DRUGS (6)
  1. ADVAIR [Suspect]
     Indication: ASTHMA
     Dosage: 1PUFF TWICE PER DAY
     Route: 055
     Dates: start: 1999
  2. XANAX [Concomitant]
  3. NORCO [Concomitant]
     Indication: PAIN
  4. VENTOLIN [Concomitant]
  5. POTASSIUM SUPPLEMENT [Concomitant]
  6. LEVOTHYROXINE [Concomitant]

REACTIONS (7)
  - Rectal cancer [Not Recovered/Not Resolved]
  - Rectal cancer [Unknown]
  - Diarrhoea haemorrhagic [Not Recovered/Not Resolved]
  - Rectal haemorrhage [Not Recovered/Not Resolved]
  - Faecal incontinence [Not Recovered/Not Resolved]
  - Blood potassium decreased [Not Recovered/Not Resolved]
  - Hypoaesthesia [Not Recovered/Not Resolved]
